FAERS Safety Report 13331082 (Version 5)
Quarter: 2017Q2

REPORT INFORMATION
  Report Type: Report from Study
  Country: JP (occurrence: JP)
  Receive Date: 20170314
  Receipt Date: 20170511
  Transmission Date: 20170830
  Serious: Yes (Hospitalization, Other)
  Sender: FDA-Public Use
  Company Number: JP-AMGEN-JPNCT2016185961

PATIENT
  Age: 78 Year
  Sex: Female
  Weight: 33.5 kg

DRUGS (16)
  1. OXALIPLATIN. [Suspect]
     Active Substance: OXALIPLATIN
     Dosage: 100 MG, Q2WEEKS
     Route: 041
     Dates: start: 20161202, end: 20170224
  2. 5-FU [Suspect]
     Active Substance: FLUOROURACIL
     Dosage: 3050 MG, Q2WK
     Route: 041
     Dates: start: 20161111, end: 20161111
  3. PANITUMUMAB [Suspect]
     Active Substance: PANITUMUMAB
     Dosage: 180 MG, Q2WK
     Route: 041
     Dates: start: 20170224, end: 20170224
  4. 5-FU [Suspect]
     Active Substance: FLUOROURACIL
     Indication: COLON CANCER
     Dosage: 500 MG, Q2WK
     Route: 040
     Dates: start: 20161111, end: 20161111
  5. CALONAL [Concomitant]
     Active Substance: ACETAMINOPHEN
     Indication: CANCER PAIN
     Dosage: 400 MG, TID
     Route: 048
     Dates: start: 20160106
  6. OXALIPLATIN. [Suspect]
     Active Substance: OXALIPLATIN
     Indication: COLON CANCER
     Dosage: 100 MG, Q2WEEKS
     Route: 041
     Dates: start: 20161111, end: 20161111
  7. 5-FU [Suspect]
     Active Substance: FLUOROURACIL
     Dosage: 500 MG, Q2WK
     Route: 040
     Dates: start: 20161202, end: 20170224
  8. CALCIUM LEVOFOLINATE [Suspect]
     Active Substance: LEVOLEUCOVORIN CALCIUM
     Dosage: 250 MG, Q2WEEKS
     Route: 041
     Dates: start: 20161202, end: 20170224
  9. TAKECAB [Concomitant]
     Active Substance: VONOPRAZAN FUMURATE
     Indication: GASTROOESOPHAGEAL REFLUX DISEASE
     Dosage: 10 MG, BID
     Route: 048
     Dates: start: 20161111
  10. PANITUMUMAB [Suspect]
     Active Substance: PANITUMUMAB
     Indication: COLON CANCER
     Dosage: 220 MG, Q2WK
     Route: 041
     Dates: start: 20161111, end: 20161111
  11. MINOMYCIN [Concomitant]
     Active Substance: MINOCYCLINE HYDROCHLORIDE
     Indication: PROPHYLAXIS
     Dosage: 100 MG, QD
     Route: 048
     Dates: start: 20161111, end: 20170310
  12. PANITUMUMAB [Suspect]
     Active Substance: PANITUMUMAB
     Dosage: 220 MG, Q2WK
     Route: 041
     Dates: start: 20161202, end: 20170106
  13. ENEVO [Concomitant]
     Indication: NUTRITIONAL SUPPLEMENTATION
     Dosage: UNK UNK, QD
     Route: 048
     Dates: start: 20170224, end: 20170316
  14. LIXIANA [Concomitant]
     Active Substance: EDOXABAN TOSYLATE
     Indication: ATRIAL FIBRILLATION
     Dosage: 30 MG, QD
     Route: 048
     Dates: start: 20161118
  15. 5-FU [Suspect]
     Active Substance: FLUOROURACIL
     Dosage: 3050 MG, Q2WEEKS
     Route: 041
     Dates: start: 20161202, end: 20170224
  16. CALCIUM LEVOFOLINATE [Suspect]
     Active Substance: LEVOLEUCOVORIN CALCIUM
     Indication: COLON CANCER
     Dosage: 250 MG, Q2WEEKS
     Route: 041
     Dates: start: 20161111, end: 20161111

REACTIONS (15)
  - Anaemia [Not Recovered/Not Resolved]
  - Depressed level of consciousness [Recovered/Resolved]
  - Hypokalaemia [Recovered/Resolved]
  - Hypokalaemia [Recovered/Resolved]
  - Neutrophil count decreased [Recovered/Resolved]
  - Hypomagnesaemia [Not Recovered/Not Resolved]
  - Atrial fibrillation [Not Recovered/Not Resolved]
  - Dysgeusia [Recovered/Resolved]
  - Fatigue [Not Recovered/Not Resolved]
  - Anaemia [Recovered/Resolved]
  - Dry skin [Recovered/Resolved]
  - Paronychia [Recovered/Resolved]
  - Peripheral sensory neuropathy [Not Recovered/Not Resolved]
  - White blood cell count decreased [Not Recovered/Not Resolved]
  - Platelet count decreased [Recovered/Resolved]

NARRATIVE: CASE EVENT DATE: 20170127
